FAERS Safety Report 17643897 (Version 1)
Quarter: 2020Q2

REPORT INFORMATION
  Report Type: Spontaneous
  Country: US (occurrence: US)
  Receive Date: 20200408
  Receipt Date: 20200408
  Transmission Date: 20200713
  Serious: Yes (Disabling)
  Sender: FDA-Public Use
  Company Number: None

PATIENT
  Age: 60 Year
  Sex: Female
  Weight: 55.35 kg

DRUGS (4)
  1. VITAMIN D [Concomitant]
     Active Substance: VITAMIN D NOS
  2. CIPROFLOXACIN HCL 500 MG TAB RX  11179 0477913 FC OBLONG WHITE C94 . [Suspect]
     Active Substance: CIPROFLOXACIN HYDROCHLORIDE
     Indication: URINARY TRACT INFECTION
     Dosage: ?          QUANTITY:10 CAPSULE(S);?
     Route: 048
     Dates: start: 20200121, end: 20200123
  3. MULTIVITAMIN [Concomitant]
     Active Substance: VITAMINS
  4. CALCIUM [Concomitant]
     Active Substance: CALCIUM

REACTIONS (9)
  - Feeling abnormal [None]
  - Insomnia [None]
  - Pain in extremity [None]
  - Tendon pain [None]
  - Myalgia [None]
  - Bone disorder [None]
  - Neuropathy peripheral [None]
  - Musculoskeletal pain [None]
  - Chest pain [None]

NARRATIVE: CASE EVENT DATE: 20200123
